FAERS Safety Report 7579043-5 (Version None)
Quarter: 2011Q2

REPORT INFORMATION
  Report Type: 
  Country: None (occurrence: None)
  Receive Date: 20110628
  Receipt Date: 20110624
  Transmission Date: 20111010
  Serious: Yes (Life-Threatening, Other)
  Sender: FDA-Public Use
  Company Number: PHHY2011GB27598

PATIENT
  Age: 50 Year
  Sex: Male

DRUGS (10)
  1. DOXORUBICIN HCL [Interacting]
     Indication: NON-HODGKIN'S LYMPHOMA UNSPECIFIED HISTOLOGY AGGRESSIVE
  2. ETOPOSIDE [Interacting]
     Indication: NON-HODGKIN'S LYMPHOMA UNSPECIFIED HISTOLOGY AGGRESSIVE
  3. RITUXIMAB [Interacting]
     Indication: NON-HODGKIN'S LYMPHOMA UNSPECIFIED HISTOLOGY AGGRESSIVE
  4. CYTARABINE [Interacting]
     Indication: NON-HODGKIN'S LYMPHOMA UNSPECIFIED HISTOLOGY AGGRESSIVE
  5. VINCRISTINE [Interacting]
     Indication: NON-HODGKIN'S LYMPHOMA UNSPECIFIED HISTOLOGY AGGRESSIVE
  6. MESNA [Concomitant]
     Indication: NON-HODGKIN'S LYMPHOMA UNSPECIFIED HISTOLOGY AGGRESSIVE
  7. METHOTREXATE [Suspect]
     Indication: NON-HODGKIN'S LYMPHOMA UNSPECIFIED HISTOLOGY AGGRESSIVE
  8. CYCLOPHOSPHAMIDE [Interacting]
     Indication: NON-HODGKIN'S LYMPHOMA UNSPECIFIED HISTOLOGY AGGRESSIVE
  9. IFOSFAMIDE [Interacting]
     Indication: NON-HODGKIN'S LYMPHOMA UNSPECIFIED HISTOLOGY AGGRESSIVE
  10. CLOZAPINE [Interacting]
     Dates: start: 20040915

REACTIONS (7)
  - DRUG INTERACTION [None]
  - NEUTROPENIA [None]
  - LEUKOPENIA [None]
  - BLOOD DISORDER [None]
  - THROMBOCYTOPENIA [None]
  - NEOPLASM PROGRESSION [None]
  - AGRANULOCYTOSIS [None]
